FAERS Safety Report 14176414 (Version 3)
Quarter: 2017Q4

REPORT INFORMATION
  Report Type: Report from Study
  Country: GB (occurrence: GB)
  Receive Date: 20171109
  Receipt Date: 20171228
  Transmission Date: 20180321
  Serious: Yes (Other)
  Sender: FDA-Public Use
  Company Number: GB-ROCHE-1962664

PATIENT
  Sex: Male

DRUGS (14)
  1. ESBRIET [Suspect]
     Active Substance: PIRFENIDONE
     Route: 048
  2. ALLOPURINOL. [Concomitant]
     Active Substance: ALLOPURINOL
  3. ESBRIET [Suspect]
     Active Substance: PIRFENIDONE
     Route: 048
  4. FLECAINIDE [Concomitant]
     Active Substance: FLECAINIDE
  5. IRBESARTAN. [Concomitant]
     Active Substance: IRBESARTAN
  6. ESBRIET [Suspect]
     Active Substance: PIRFENIDONE
     Route: 048
  7. ESBRIET [Suspect]
     Active Substance: PIRFENIDONE
     Route: 048
  8. AMLODIPINE [Concomitant]
     Active Substance: AMLODIPINE BESYLATE
  9. ESBRIET [Suspect]
     Active Substance: PIRFENIDONE
     Indication: IDIOPATHIC PULMONARY FIBROSIS
     Route: 048
     Dates: start: 20170515
  10. ATENOLOL. [Concomitant]
     Active Substance: ATENOLOL
  11. ESBRIET [Suspect]
     Active Substance: PIRFENIDONE
     Route: 048
  12. ESCITALOPRAM [Concomitant]
     Active Substance: ESCITALOPRAM OXALATE
  13. AMITRIPTYLINE [Concomitant]
     Active Substance: AMITRIPTYLINE
  14. ATORVASTATIN [Concomitant]
     Active Substance: ATORVASTATIN

REACTIONS (13)
  - Depressed mood [Unknown]
  - Dizziness [Unknown]
  - Lower respiratory tract infection [Unknown]
  - Campylobacter gastroenteritis [Unknown]
  - Decreased appetite [Recovering/Resolving]
  - Fatigue [Not Recovered/Not Resolved]
  - Rash [Recovered/Resolved]
  - Malaise [Unknown]
  - Paraesthesia [Unknown]
  - Cough [Unknown]
  - Diarrhoea [Unknown]
  - Pruritus [Unknown]
  - Weight decreased [Not Recovered/Not Resolved]
